FAERS Safety Report 5287840-4 (Version None)
Quarter: 2007Q1

REPORT INFORMATION
  Report Type: 
  Country: None (occurrence: None)
  Receive Date: 20070112
  Receipt Date: 20060812
  Transmission Date: 20070707
  Serious: Yes (Hospitalization)
  Sender: FDA-Public Use
  Company Number: PHEH2006US10313

PATIENT
  Age: 7 Year
  Sex: Female

DRUGS (3)
  1. FOCALIN [Suspect]
     Indication: AUTISM
     Dosage: 70 MG,QD,ORAL
     Route: 048
  2. ZYPREXA [Concomitant]
  3. SEROQUEL [Concomitant]

REACTIONS (1)
  - CONVULSION [None]
